FAERS Safety Report 6163963-2 (Version None)
Quarter: 2009Q2

REPORT INFORMATION
  Report Type: 
  Country: None (occurrence: None)
  Receive Date: 20090422
  Receipt Date: 20090416
  Transmission Date: 20091009
  Serious: Yes (Hospitalization)
  Sender: FDA-Public Use
  Company Number: US-TEVA-191810USA

PATIENT
  Sex: Female
  Weight: 56.75 kg

DRUGS (14)
  1. SALBUTAMOL SULFATE INHALATION, 0.09 MG [Suspect]
     Indication: CHRONIC OBSTRUCTIVE PULMONARY DISEASE
     Dosage: 2 PUFFS PRN AS RESCUE
     Route: 055
     Dates: start: 20081201
  2. TIOTROPIUM BROMIDE [Concomitant]
     Route: 055
  3. BREVA [Concomitant]
     Route: 055
  4. CLONIDINE [Concomitant]
     Indication: BLOOD PRESSURE
     Route: 048
  5. SERETIDE [Concomitant]
  6. LORATADINE [Concomitant]
     Indication: ARTHRITIS
     Route: 048
  7. DIAZEPAM [Concomitant]
     Indication: PANIC ATTACK
     Route: 048
  8. LEVOSALBUTAMOL [Concomitant]
     Route: 055
  9. ESTROGENS CONJUGATED [Concomitant]
     Route: 048
  10. SERTRALINE HCL [Concomitant]
     Route: 048
  11. FUROSEMIDE [Concomitant]
     Route: 048
  12. HYOSCYAMINE SULFATE [Concomitant]
     Indication: OESOPHAGEAL SPASM
     Route: 048
  13. PROMETHAZINE [Concomitant]
  14. PREDNISONE [Concomitant]
     Route: 048

REACTIONS (4)
  - CHRONIC OBSTRUCTIVE PULMONARY DISEASE [None]
  - DEVICE CONNECTION ISSUE [None]
  - DYSPNOEA [None]
  - PNEUMONIA [None]
